FAERS Safety Report 18582784 (Version 1)
Quarter: 2020Q4

REPORT INFORMATION
  Report Type: Spontaneous
  Country: JP (occurrence: JP)
  Receive Date: 20201205
  Receipt Date: 20201205
  Transmission Date: 20210114
  Serious: Yes (Other)
  Sender: FDA-Public Use
  Company Number: NVSC2020JP322690

PATIENT
  Age: 87 Year
  Sex: Female

DRUGS (2)
  1. RIVASTACH [Suspect]
     Active Substance: RIVASTIGMINE
     Indication: DEMENTIA ALZHEIMER^S TYPE
     Dosage: UNK
     Route: 062
  2. RIVASTACH [Suspect]
     Active Substance: RIVASTIGMINE
     Dosage: 18 MG, QD (PATCH 10 CM2) (DAILY DELIVERED DOSE 9.5 MG)
     Route: 062

REACTIONS (3)
  - Altered state of consciousness [Recovering/Resolving]
  - Feeling abnormal [Unknown]
  - Vomiting [Recovering/Resolving]
